FAERS Safety Report 10270825 (Version 2)
Quarter: 2014Q2

REPORT INFORMATION
  Report Type: Spontaneous
  Country: CH (occurrence: None)
  Receive Date: 20140626
  Receipt Date: 20140630
  Transmission Date: 20141212
  Serious: Yes (Life-Threatening, Hospitalization)
  Sender: FDA-Public Use
  Company Number: 2014MPI00721

PATIENT
  Age: 27 Year
  Sex: Male
  Weight: 70 kg

DRUGS (8)
  1. ADCETRIS [Suspect]
     Indication: HODGKIN^S DISEASE
     Route: 042
     Dates: start: 20130920, end: 20140214
  2. BACTRIM [Suspect]
  3. ESOMEPRAZOLE MAGNESIUM (ESOMEPRAZOLE MAGNESIUM) [Concomitant]
  4. POTASSIUM CHLORIDE DENOLIN (POTASSIUM CHLORIDE) [Concomitant]
  5. COTRIM (SULFAMETHOXAZOLE, TRIMETHOPRIM) [Concomitant]
  6. VALACICLOVIR HYDROCHLORIDE (VALACICLOVIR HYDROCHLORIDE) [Concomitant]
  7. PREDNISONE (PREDNISONE ACETATE) [Concomitant]
  8. BUDENOFALK (BUDESONIDE) [Concomitant]

REACTIONS (10)
  - Cerebrovascular accident [None]
  - Facial paresis [None]
  - Hypoglossal nerve paresis [None]
  - Hemiparesis [None]
  - Diarrhoea [None]
  - Shock [None]
  - Adenovirus test positive [None]
  - Cerebral artery occlusion [None]
  - Graft versus host disease [None]
  - Hypokalaemia [None]
